FAERS Safety Report 10210447 (Version 1)
Quarter: 2014Q2

REPORT INFORMATION
  Report Type: Spontaneous
  Country: ZA (occurrence: ZA)
  Receive Date: 20140602
  Receipt Date: 20140602
  Transmission Date: 20141212
  Serious: Yes (Other)
  Sender: FDA-Public Use
  Company Number: ZA-SA-2014SA066665

PATIENT
  Sex: Male

DRUGS (4)
  1. CLOPIDOGREL WINTHROP [Suspect]
     Indication: PRODUCT USED FOR UNKNOWN INDICATION
     Route: 048
     Dates: start: 201205
  2. CLOPIVAS [Suspect]
     Indication: PRODUCT USED FOR UNKNOWN INDICATION
     Route: 048
     Dates: start: 201305, end: 201310
  3. ATORVASTATIN [Concomitant]
     Route: 048
  4. DISPRIN [Concomitant]
     Route: 048

REACTIONS (4)
  - Stent placement [Unknown]
  - Thrombosis [Unknown]
  - Urticaria [Not Recovered/Not Resolved]
  - Rash pruritic [Not Recovered/Not Resolved]
